FAERS Safety Report 11629841 (Version 4)
Quarter: 2016Q1

REPORT INFORMATION
  Report Type: Spontaneous
  Country: US (occurrence: US)
  Receive Date: 20151014
  Receipt Date: 20160106
  Transmission Date: 20160525
  Serious: No
  Sender: FDA-Public Use
  Company Number: US-PFIZER INC-2015345045

PATIENT
  Age: 68 Year
  Sex: Female

DRUGS (4)
  1. OMEPRAZOLE. [Concomitant]
     Active Substance: OMEPRAZOLE
     Dosage: UNK
  2. HYDROCORTISONE ACETATE. [Suspect]
     Active Substance: HYDROCORTISONE ACETATE
     Indication: ADRENAL INSUFFICIENCY
     Dosage: 10 MG, BID VS 2 TABLETS EVERY MORNING, 1 TABLET AT NOON
     Route: 048
     Dates: start: 20150810
  3. FLUDROCORTISONE [Concomitant]
     Active Substance: FLUDROCORTISONE
     Dosage: UNK
  4. ESTROPIPATE. [Concomitant]
     Active Substance: ESTROPIPATE
     Dosage: UNK

REACTIONS (1)
  - Malaise [Recovered/Resolved]

NARRATIVE: CASE EVENT DATE: 20150810
